FAERS Safety Report 8596028 (Version 2)
Quarter: 2013Q2

REPORT INFORMATION
  Report Type: Spontaneous
  Country: US (occurrence: US)
  Receive Date: 20120605
  Receipt Date: 20130617
  Transmission Date: 20140414
  Serious: Yes (Disabling)
  Sender: FDA-Public Use
  Company Number: US-ASTRAZENECA-2012SE34658

PATIENT
  Age: 49 Year
  Sex: Female
  Weight: 73.9 kg

DRUGS (5)
  1. NEXIUM [Suspect]
     Dosage: ONE TIME A DAY
     Route: 048
     Dates: end: 2005
  2. ROLAIDS [Concomitant]
  3. ALKA-SELTZER [Concomitant]
  4. MYLANTA [Concomitant]
  5. TUMS [Concomitant]

REACTIONS (3)
  - Ill-defined disorder [Unknown]
  - Osteoporosis [Unknown]
  - Multiple fractures [Unknown]
